FAERS Safety Report 24784264 (Version 1)
Quarter: 2024Q4

REPORT INFORMATION
  Report Type: Spontaneous
  Country: US (occurrence: None)
  Receive Date: 20241227
  Receipt Date: 20241227
  Transmission Date: 20250115
  Serious: Yes (Death)
  Sender: Public
  Company Number: None

PATIENT
  Age: 75 Year
  Sex: Female

DRUGS (1)
  1. LENALIDOMIDE [Suspect]
     Active Substance: LENALIDOMIDE
     Indication: Plasma cell myeloma
     Dosage: OTHER FREQUENCY : 1 TIME A DAY FOR 14 DAYS THEN 7 DAYS OFF;?
     Route: 048
     Dates: start: 202202

REACTIONS (1)
  - Death [None]

NARRATIVE: CASE EVENT DATE: 20241209
